FAERS Safety Report 9209397 (Version 1)
Quarter: 2013Q1

REPORT INFORMATION
  Report Type: Spontaneous
  Country: US (occurrence: None)
  Receive Date: 20120724
  Receipt Date: 20120724
  Transmission Date: 20140127
  Serious: Yes (Other)
  Sender: FDA-Public Use
  Company Number: 1257971

PATIENT
  Age: 65 Year
  Sex: Male
  Weight: 102.73 kg

DRUGS (4)
  1. VANCOMYCIN HYDROCHLORIDE [Suspect]
     Indication: CELLULITIS
     Dosage: 1500 MG / Q12 HOURS
     Dates: start: 20120319
  2. VANCOMYCIN HYDROCHLORIDE [Suspect]
     Indication: SOFT TISSUE INFECTION
     Dosage: 1500 MG / Q12 HOURS
     Dates: start: 20120319
  3. PIPERACILLIN/TAZOBACTAM) [Suspect]
     Indication: CELLULITIS
     Dosage: 3.375 GRAMS, Q6HOURS
     Dates: start: 20120319, end: 20120326
  4. PIPERACILLIN/TAZOBACTAM) [Suspect]
     Indication: SOFT TISSUE INFECTION
     Dosage: 3.375 GRAMS, Q6HOURS
     Dates: start: 20120319, end: 20120326

REACTIONS (1)
  - Tubulointerstitial nephritis [None]
